FAERS Safety Report 9345632 (Version 1)
Quarter: 2013Q2

REPORT INFORMATION
  Report Type: Spontaneous
  Country: US (occurrence: US)
  Receive Date: 20130613
  Receipt Date: 20130613
  Transmission Date: 20140414
  Serious: Yes (Hospitalization)
  Sender: FDA-Public Use
  Company Number: US-BAYER-2013-072176

PATIENT
  Age: 35 Year
  Sex: Female
  Weight: 55.78 kg

DRUGS (9)
  1. GIANVI [Suspect]
  2. FLUTICASONE PROPIONATE [Concomitant]
     Dosage: 50 MCG SPRAY
     Dates: start: 20120718, end: 20121107
  3. DAILY-VITE [Concomitant]
     Dosage: UNK
     Dates: start: 20120718, end: 20121107
  4. OMEPRAZOL [Concomitant]
     Dosage: 20 MG, UNK
     Dates: start: 20120813, end: 20121123
  5. CETIRIZIN [Concomitant]
     Dosage: 10 MG, UNK
     Dates: start: 20120813, end: 20121107
  6. SERTRALIN [Concomitant]
     Dosage: 25 MG, UNK
     Dates: start: 20120914, end: 20121105
  7. QUETIAPINE FUMARATE [Concomitant]
     Dosage: 25 MG, UNK
     Dates: start: 20120914
  8. CLONAZEPAM [Concomitant]
     Dosage: 0.5 MG, UNK
     Dates: start: 20120914, end: 20121105
  9. MOVIPREP [Concomitant]
     Dosage: UNK
     Dates: start: 20121113

REACTIONS (1)
  - Pulmonary embolism [None]
